FAERS Safety Report 6824724-1 (Version None)
Quarter: 2010Q3

REPORT INFORMATION
  Report Type: 
  Country: None (occurrence: None)
  Receive Date: 20100708
  Receipt Date: 20070102
  Transmission Date: 20110219
  Serious: Yes (Other)
  Sender: FDA-Public Use
  Company Number: US-PFIZER INC-2006137904

PATIENT
  Sex: Female
  Weight: 73.5 kg

DRUGS (1)
  1. CHANTIX [Suspect]
     Indication: EX-TOBACCO USER
     Route: 048
     Dates: start: 20061001

REACTIONS (3)
  - HOT FLUSH [None]
  - INCREASED APPETITE [None]
  - WEIGHT INCREASED [None]
